FAERS Safety Report 8838022 (Version 1)
Quarter: 2012Q4

REPORT INFORMATION
  Report Type: 
  Country: JP (occurrence: JP)
  Receive Date: 20121012
  Receipt Date: 20121012
  Transmission Date: 20130627
  Serious: Yes (Death, Hospitalization, Other)
  Sender: FDA-Public Use
  Company Number: JP-ROCHE-1141117

PATIENT
  Sex: Male

DRUGS (2)
  1. GRTPA [Suspect]
     Indication: EMBOLIC STROKE
     Route: 042
     Dates: start: 20110929, end: 20110929
  2. EDARAVONE [Suspect]
     Indication: EMBOLIC STROKE
     Route: 042
     Dates: start: 20110929, end: 20111001

REACTIONS (3)
  - Cerebral infarction [Fatal]
  - Haemorrhagic infarction [Unknown]
  - Embolic stroke [None]
